FAERS Safety Report 4446562-X (Version None)
Quarter: 2004Q3

REPORT INFORMATION
  Report Type: 
  Country: None (occurrence: None)
  Receive Date: 20040902
  Receipt Date: 20040818
  Transmission Date: 20050211
  Serious: Yes (Hospitalization)
  Sender: FDA-Public Use
  Company Number: EWC040840326

PATIENT
  Age: 47 Year
  Sex: Male

DRUGS (3)
  1. PERGOLIDE MESYLATE [Suspect]
     Indication: PARKINSON'S DISEASE
     Dosage: 0.5 MG/3DAY
     Dates: start: 19970101, end: 20040101
  2. LEVODOPA [Concomitant]
  3. AMANTADINE HCL [Concomitant]

REACTIONS (3)
  - FIBROSIS [None]
  - GASTROINTESTINAL DISORDER [None]
  - INTESTINAL OBSTRUCTION [None]
